FAERS Safety Report 11772583 (Version 3)
Quarter: 2015Q4

REPORT INFORMATION
  Report Type: Report from Study
  Country: US (occurrence: US)
  Receive Date: 20151124
  Receipt Date: 20151204
  Transmission Date: 20160304
  Serious: Yes (Death, Hospitalization, Other)
  Sender: FDA-Public Use
  Company Number: US-BIOGENIDEC-2015BI149341

PATIENT
  Age: 64 Year
  Sex: Male

DRUGS (1)
  1. TYSABRI [Suspect]
     Active Substance: NATALIZUMAB
     Indication: MULTIPLE SCLEROSIS
     Route: 042
     Dates: start: 20141119, end: 20150910

REACTIONS (15)
  - Respiratory failure [Recovered/Resolved]
  - Poor venous access [Recovered/Resolved]
  - Prostate cancer [Fatal]
  - Fall [Recovered/Resolved]
  - Clostridium difficile infection [Unknown]
  - Drug ineffective [Unknown]
  - Pneumonia staphylococcal [Fatal]
  - Dehydration [Unknown]
  - Urinary retention [Unknown]
  - Skin disorder [Recovered/Resolved]
  - Actinic keratosis [Unknown]
  - Renal failure [Fatal]
  - Atrial fibrillation [Unknown]
  - Urinary tract infection [Recovered/Resolved]
  - Vomiting [Recovered/Resolved]

NARRATIVE: CASE EVENT DATE: 20150429
